FAERS Safety Report 10214635 (Version 2)
Quarter: 2014Q2

REPORT INFORMATION
  Report Type: Report from Study
  Country: CA (occurrence: CA)
  Receive Date: 20140603
  Receipt Date: 20140603
  Transmission Date: 20141212
  Serious: Yes (Death, Other)
  Sender: FDA-Public Use
  Company Number: CA-BRISTOL-MYERS SQUIBB COMPANY-20593133

PATIENT
  Age: 75 Year
  Sex: Female

DRUGS (8)
  1. ABATACEPT SUBQ INJECTION 125MG/ML [Suspect]
     Indication: RHEUMATOID ARTHRITIS
     Route: 058
     Dates: start: 20140131, end: 2014
  2. METHOTREXATE [Suspect]
  3. PLAQUENIL [Concomitant]
  4. FOLIC ACID [Concomitant]
  5. VOLTAREN [Concomitant]
  6. PARIET [Concomitant]
  7. PREDNISONE [Concomitant]
  8. FOSAMAX [Concomitant]

REACTIONS (4)
  - Death [Fatal]
  - Pulmonary fibrosis [Unknown]
  - Cardio-respiratory arrest [Unknown]
  - Vaginal infection [Unknown]
